FAERS Safety Report 6858358-X (Version None)
Quarter: 2010Q3

REPORT INFORMATION
  Report Type: 
  Country: None (occurrence: None)
  Receive Date: 20100719
  Receipt Date: 20080428
  Transmission Date: 20110219
  Serious: No
  Sender: FDA-Public Use
  Company Number: US-PFIZER INC-2008011779

PATIENT
  Sex: Female
  Weight: 54.5 kg

DRUGS (5)
  1. CHANTIX [Suspect]
     Indication: SMOKING CESSATION THERAPY
     Route: 048
     Dates: start: 20080201
  2. GLUCOSAMINE [Concomitant]
     Indication: ARTHRITIS
  3. IBUPROFEN [Concomitant]
  4. XANAX [Concomitant]
     Indication: ANXIETY
  5. VITAMINS [Concomitant]

REACTIONS (15)
  - ANXIETY [None]
  - DIZZINESS [None]
  - DRY MOUTH [None]
  - FEELING ABNORMAL [None]
  - ILL-DEFINED DISORDER [None]
  - IMPATIENCE [None]
  - INSOMNIA [None]
  - IRRITABILITY [None]
  - MALAISE [None]
  - NAUSEA [None]
  - NERVOUSNESS [None]
  - TACHYCARDIA [None]
  - TOOTH DISORDER [None]
  - UNEVALUABLE EVENT [None]
  - VISION BLURRED [None]
